FAERS Safety Report 8589903-4 (Version None)
Quarter: 2012Q3

REPORT INFORMATION
  Report Type: 
  Country: None (occurrence: None)
  Receive Date: 20120813
  Receipt Date: 20120810
  Transmission Date: 20120928
  Serious: Yes (Other)
  Sender: FDA-Public Use
  Company Number: PHHY2012CO068849

PATIENT
  Sex: Female

DRUGS (1)
  1. ZOLEDRONOC ACID [Suspect]
     Indication: OSTEOPOROSIS
     Dosage: 5 MG, UNK
     Route: 042
     Dates: start: 20120727

REACTIONS (5)
  - OSTEITIS [None]
  - INFLUENZA [None]
  - JAW DISORDER [None]
  - PERIODONTAL DISEASE [None]
  - PAIN IN JAW [None]
